FAERS Safety Report 26143228 (Version 1)
Quarter: 2025Q4

REPORT INFORMATION
  Report Type: Spontaneous
  Country: CA (occurrence: CA)
  Receive Date: 20251211
  Receipt Date: 20251211
  Transmission Date: 20260117
  Serious: Yes (Other)
  Sender: SANOFI AVENTIS
  Company Number: None

PATIENT
  Age: 50 Year
  Sex: Female

DRUGS (8)
  1. RIFADIN [Suspect]
     Active Substance: RIFAMPIN
     Indication: Disseminated tuberculosis
     Dosage: 300 MG
     Route: 048
     Dates: start: 20041006
  2. PYRAZINAMIDE [Suspect]
     Active Substance: PYRAZINAMIDE
     Indication: Disseminated tuberculosis
     Dosage: 1200 MG
     Route: 048
     Dates: start: 20041006, end: 200411
  3. BACTRIM DS [Concomitant]
     Active Substance: SULFAMETHOXAZOLE\TRIMETHOPRIM
     Indication: Mycobacterial infection
     Dosage: 200 MG, QD
     Route: 048
     Dates: start: 20041006
  4. CORTISONE [Concomitant]
     Active Substance: CORTISONE
     Indication: Adrenal insufficiency
     Dosage: 15 MG
     Route: 048
     Dates: start: 200406
  5. DOXYCYCLINE [Concomitant]
     Active Substance: DOXYCYCLINE
     Indication: Mycobacterial infection
     Dosage: 200 MG, QD
     Route: 048
     Dates: start: 20041006
  6. ETHAMBUTOL [Concomitant]
     Active Substance: ETHAMBUTOL HYDROCHLORIDE
     Indication: Disseminated tuberculosis
     Dosage: 600 MG, QD
     Route: 048
     Dates: start: 20041006
  7. ISONIAZID [Concomitant]
     Active Substance: ISONIAZID
     Indication: Disseminated tuberculosis
     Dosage: 300 MG
     Route: 048
     Dates: start: 20041006
  8. SYNTHROID [Concomitant]
     Active Substance: LEVOTHYROXINE SODIUM
     Indication: Autoimmune thyroiditis
     Dosage: 0.18 MG, DAILY DOSE: .175MILLIGRAM
     Route: 048
     Dates: start: 1999

REACTIONS (3)
  - Transaminases increased [Recovered/Resolved]
  - Blood uric acid increased [Recovered/Resolved]
  - Neuropathy peripheral [Not Recovered/Not Resolved]

NARRATIVE: CASE EVENT DATE: 20041111
